FAERS Safety Report 22941321 (Version 7)
Quarter: 2024Q2

REPORT INFORMATION
  Report Type: Spontaneous
  Country: US (occurrence: US)
  Receive Date: 20230913
  Receipt Date: 20240531
  Transmission Date: 20240716
  Serious: Yes (Hospitalization, Other)
  Sender: FDA-Public Use
  Company Number: US-BRISTOL-MYERS SQUIBB COMPANY-2023-128288

PATIENT
  Age: 72 Year
  Sex: Female

DRUGS (4)
  1. REVLIMID [Suspect]
     Active Substance: LENALIDOMIDE
     Indication: Plasma cell myeloma in remission
     Dosage: TAKE 1 CAPSULE (5MG) BY MOUTH EVERY DAY FOR 21 DAYS, FOLLOWED BY 7 DAYS OFF FOR 28 DAY CYCLE
     Route: 048
     Dates: start: 20190807
  2. REVLIMID [Suspect]
     Active Substance: LENALIDOMIDE
     Dosage: TAKE 1 CAPSULE OF LENALIDOMIDE AT A DOSE OF 5MG, BY MOUTH EVERY DAY FOR 21 DAYS FOLLOWED BY 7 DAYS O
     Route: 048
     Dates: start: 20221128
  3. REVLIMID [Suspect]
     Active Substance: LENALIDOMIDE
     Dosage: TAKE 1 CAPSULE OF LENALIDOMIDE AT A DOSE OF 5MG, BY MOUTH EVERY DAY FOR 21 DAYS FOLLOWED BY 7 DAYS O
     Route: 048
  4. REVLIMID [Suspect]
     Active Substance: LENALIDOMIDE
     Dosage: TAKE 1 CAPSULE OF LENALIDOMIDE AT A DOSE OF 5MG, BY MOUTH EVERY DAY FOR 21 DAYS FOLLOWED BY 7 DAYS O
     Route: 048

REACTIONS (11)
  - Diabetes mellitus [Recovering/Resolving]
  - Localised infection [Recovered/Resolved]
  - Inappropriate schedule of product administration [Unknown]
  - Fall [Not Recovered/Not Resolved]
  - Neck pain [Unknown]
  - Rotator cuff syndrome [Not Recovered/Not Resolved]
  - Balance disorder [Unknown]
  - Head injury [Not Recovered/Not Resolved]
  - Pruritus [Not Recovered/Not Resolved]
  - Diarrhoea [Not Recovered/Not Resolved]
  - Abdominal pain upper [Not Recovered/Not Resolved]

NARRATIVE: CASE EVENT DATE: 20230907
